FAERS Safety Report 7101971-5 (Version None)
Quarter: 2010Q4

REPORT INFORMATION
  Report Type: 
  Country: None (occurrence: None)
  Receive Date: 20101115
  Receipt Date: 20101110
  Transmission Date: 20110411
  Serious: Yes (Death)
  Sender: FDA-Public Use
  Company Number: BR-SANOFI-AVENTIS-2010SA068556

PATIENT
  Sex: Male

DRUGS (1)
  1. CLEXANE [Suspect]
     Route: 065
     Dates: end: 20100101

REACTIONS (1)
  - INFARCTION [None]
